FAERS Safety Report 18574538 (Version 2)
Quarter: 2020Q4

REPORT INFORMATION
  Report Type: Spontaneous
  Country: RU (occurrence: RU)
  Receive Date: 20201203
  Receipt Date: 20201218
  Transmission Date: 20210114
  Serious: Yes (Other)
  Sender: FDA-Public Use
  Company Number: RU-AMGEN-RUSSP2020193798

PATIENT

DRUGS (1)
  1. PROLIA [Suspect]
     Active Substance: DENOSUMAB
     Indication: OSTEOPOROSIS
     Dosage: UNK
     Route: 065

REACTIONS (13)
  - Hip fracture [Unknown]
  - Tibia fracture [Unknown]
  - Foot fracture [Unknown]
  - Pelvic fracture [Unknown]
  - Fibula fracture [Unknown]
  - Humerus fracture [Unknown]
  - Rib fracture [Unknown]
  - Patella fracture [Unknown]
  - Spinal fracture [Unknown]
  - Ankle fracture [Unknown]
  - Clavicle fracture [Unknown]
  - Forearm fracture [Unknown]
  - Hand fracture [Unknown]
